FAERS Safety Report 11625682 (Version 2)
Quarter: 2015Q4

REPORT INFORMATION
  Report Type: Spontaneous
  Country: US (occurrence: US)
  Receive Date: 20151013
  Receipt Date: 20151027
  Transmission Date: 20160304
  Serious: No
  Sender: FDA-Public Use
  Company Number: US-009507513-1510USA001647

PATIENT
  Sex: Male

DRUGS (1)
  1. NEXPLANON [Suspect]
     Active Substance: ETONOGESTREL
     Dosage: UNK, UNKNOWN
     Route: 065

REACTIONS (4)
  - Accidental exposure to product [Unknown]
  - Injury associated with device [Recovered/Resolved]
  - Contusion [Recovered/Resolved]
  - Product closure removal difficult [Unknown]

NARRATIVE: CASE EVENT DATE: 201508
